FAERS Safety Report 25271483 (Version 1)
Quarter: 2025Q2

REPORT INFORMATION
  Report Type: Spontaneous
  Country: TW (occurrence: TW)
  Receive Date: 20250506
  Receipt Date: 20250506
  Transmission Date: 20250717
  Serious: Yes (Other)
  Sender: UCB
  Company Number: TW-GSK-TW2025APC049616

PATIENT
  Age: 67 Year
  Sex: Female
  Weight: 44 kg

DRUGS (6)
  1. KEPPRA [Suspect]
     Active Substance: LEVETIRACETAM
     Indication: Seizure
     Route: 048
     Dates: start: 20140326, end: 20140407
  2. KEPPRA [Suspect]
     Active Substance: LEVETIRACETAM
     Indication: Somnolence
  3. KEPPRA [Suspect]
     Active Substance: LEVETIRACETAM
     Indication: Tremor
  4. KEPPRA [Suspect]
     Active Substance: LEVETIRACETAM
     Indication: Product used for unknown indication
     Route: 048
     Dates: start: 20140313
  5. PIPETAZO [Concomitant]
     Indication: Product used for unknown indication
     Route: 042
     Dates: start: 20140313, end: 20140318
  6. BENSERAZIDE HYDROCHLORIDE\LEVODOPA [Concomitant]
     Active Substance: BENSERAZIDE HYDROCHLORIDE\LEVODOPA
     Indication: Parkinson^s disease
     Dates: start: 20140311, end: 20140415

REACTIONS (12)
  - Thrombocytopenia [Recovered/Resolved]
  - Atypical pneumonia [Recovering/Resolving]
  - Renal perivascular epithelioid cell tumour [Recovering/Resolving]
  - Coma [Recovering/Resolving]
  - Pulmonary oedema [Recovering/Resolving]
  - Trismus [Recovering/Resolving]
  - Catatonia [Recovering/Resolving]
  - Pleural effusion [Recovering/Resolving]
  - Cholelithiasis [Recovering/Resolving]
  - Nervous system disorder [Unknown]
  - Diarrhoea [Recovered/Resolved]
  - Product use in unapproved indication [Unknown]

NARRATIVE: CASE EVENT DATE: 20140301
